FAERS Safety Report 10965881 (Version 3)
Quarter: 2015Q2

REPORT INFORMATION
  Report Type: Report from Study
  Country: US (occurrence: US)
  Receive Date: 20150330
  Receipt Date: 20150526
  Transmission Date: 20150821
  Serious: Yes (Other)
  Sender: FDA-Public Use
  Company Number: US-BAYER-2015-026847

PATIENT
  Age: 57 Year
  Sex: Male

DRUGS (3)
  1. STIVARGA [Suspect]
     Active Substance: REGORAFENIB
     Indication: METASTASES TO LUNG
     Dosage: 120 MG, QD
     Route: 048
     Dates: start: 201502
  2. STIVARGA [Suspect]
     Active Substance: REGORAFENIB
     Indication: COLORECTAL CANCER METASTATIC
     Dosage: 160 MG, QD
     Route: 048
     Dates: start: 20150214, end: 20150226
  3. STIVARGA [Suspect]
     Active Substance: REGORAFENIB
     Indication: COLORECTAL CANCER METASTATIC
     Dosage: 80 MG, QD
     Route: 048
     Dates: start: 201502

REACTIONS (10)
  - Hypoaesthesia [None]
  - Dyspnoea exertional [None]
  - Neuropathy peripheral [Recovering/Resolving]
  - Dry mouth [None]
  - Pain in extremity [Recovering/Resolving]
  - Weight decreased [None]
  - Skin exfoliation [None]
  - Fatigue [None]
  - Limb discomfort [None]
  - Decreased appetite [None]

NARRATIVE: CASE EVENT DATE: 201502
